FAERS Safety Report 4936386-9 (Version None)
Quarter: 2006Q1

REPORT INFORMATION
  Report Type: 
  Country: None (occurrence: None)
  Receive Date: 20060302
  Receipt Date: 20060207
  Transmission Date: 20060701
  Serious: Yes (Hospitalization, Other)
  Sender: FDA-Public Use
  Company Number: US200601002019

PATIENT
  Age: 76 Year
  Sex: Female

DRUGS (12)
  1. FORTEO [Suspect]
     Indication: OSTEOPOROSIS
     Dates: start: 20050901
  2. FORTEO [Concomitant]
  3. NEURONTIN [Concomitant]
  4. AVALIDE [Concomitant]
  5. HYDROCHLOROTHIAZIDE [Concomitant]
  6. SINGULAIR ^MERCK^ (MONTELUKAST SODIUM) [Concomitant]
  7. SYNTHROID [Concomitant]
  8. CALTRATE + D (CALCIUM CARBONATE, COLECALCIFEROL) [Concomitant]
  9. ALLEGRA [Concomitant]
  10. MOBIC [Concomitant]
  11. MULTIVITAMINS (ASCORBIC ACID, ERGOCALCIFEROL, FOLIC ACID, NICOTINAMIDE [Concomitant]
  12. TYLENOL /USA/ (PARACETAMOL) [Concomitant]

REACTIONS (6)
  - ABDOMINAL TENDERNESS [None]
  - CHOLELITHIASIS [None]
  - DEEP VEIN THROMBOSIS [None]
  - INTERNATIONAL NORMALISED RATIO DECREASED [None]
  - LIMB DISCOMFORT [None]
  - SPINAL DISORDER [None]
